FAERS Safety Report 13477478 (Version 1)
Quarter: 2017Q2

REPORT INFORMATION
  Report Type: Spontaneous
  Country: US (occurrence: US)
  Receive Date: 20170425
  Receipt Date: 20170425
  Transmission Date: 20170830
  Serious: Yes (Other)
  Sender: FDA-Public Use
  Company Number: US-HORMOSAN-2017-01928

PATIENT
  Age: 18 Year
  Sex: Female
  Weight: 39.2 kg

DRUGS (3)
  1. LEVETIRACETAM TABLETS USP, 500 MG [Suspect]
     Active Substance: LEVETIRACETAM
     Dosage: 0.5 DF, BID
     Route: 048
     Dates: start: 20170408
  2. LEVETIRACETAM TABLETS USP, 500 MG [Suspect]
     Active Substance: LEVETIRACETAM
     Dosage: 0.5 DF, BID
     Route: 048
     Dates: start: 20170320, end: 20170404
  3. LEVETIRACETAM TABLETS USP, 500 MG [Suspect]
     Active Substance: LEVETIRACETAM
     Indication: SEIZURE
     Dosage: 500 MG, BID
     Route: 048
     Dates: start: 20170317, end: 20170318

REACTIONS (3)
  - Generalised tonic-clonic seizure [Recovered/Resolved]
  - Abnormal behaviour [Recovered/Resolved]
  - Drug dose omission [Unknown]

NARRATIVE: CASE EVENT DATE: 20170408
